FAERS Safety Report 11538600 (Version 1)
Quarter: 2015Q3

REPORT INFORMATION
  Report Type: Spontaneous
  Country: US (occurrence: US)
  Receive Date: 20150923
  Receipt Date: 20150923
  Transmission Date: 20151125
  Serious: Yes (Other)
  Sender: FDA-Public Use
  Company Number: PHEH2015US018070

PATIENT
  Sex: Male

DRUGS (1)
  1. CLOZARIL [Suspect]
     Active Substance: CLOZAPINE
     Indication: SCHIZOPHRENIA
     Dosage: 150-200 MG
     Dates: start: 201504

REACTIONS (5)
  - Psychotic disorder [Unknown]
  - Impaired gastric emptying [Unknown]
  - Decreased activity [Unknown]
  - Ileus paralytic [Unknown]
  - Malabsorption [Unknown]
